FAERS Safety Report 8604670 (Version 5)
Quarter: 2012Q4

REPORT INFORMATION
  Report Type: Report from Study
  Country: FR (occurrence: FR)
  Receive Date: 20120608
  Receipt Date: 20121114
  Transmission Date: 20130627
  Serious: Yes (Hospitalization, Other)
  Sender: FDA-Public Use
  Company Number: FR-ASTELLAS-2012EU003986

PATIENT
  Age: 0 Year
  Sex: Male
  Weight: 2.47 kg

DRUGS (13)
  1. MICAFUNGIN INJECTION [Suspect]
     Indication: ASCITES
     Dosage: 5 mg/kg, Unknown/D
     Route: 042
     Dates: start: 20120321, end: 20120414
  2. MICAFUNGIN INJECTION [Suspect]
     Indication: OEDEMA
  3. VANCOMYCINE [Concomitant]
     Indication: SEPSIS
     Dosage: 30 mg/kg, Unknown/D
     Route: 042
     Dates: start: 20120220, end: 20120318
  4. FORTUM /00559701/ [Concomitant]
     Indication: SEPSIS
     Dosage: 35 mg/kg, Unknown/D
     Route: 042
     Dates: start: 20120220, end: 20120304
  5. HYDROCORTISONE HEMISUCCINATE [Concomitant]
     Indication: GLUCOCORTICOID DEFICIENCY
     Dosage: 1 mg/kg, Unknown/D
     Route: 042
     Dates: start: 20120105, end: 20120407
  6. SOLUDACTONE [Concomitant]
     Indication: ASCITES
     Dosage: 2 mg/kg, Unknown/D
     Route: 042
     Dates: start: 20120117, end: 20120420
  7. SOLUDACTONE [Concomitant]
     Indication: OEDEMA
  8. PANTOPRAZOLE [Concomitant]
     Indication: GASTROOESOPHAGEAL REFLUX DISEASE
     Dosage: 2 mg/kg, Unknown/D
     Route: 042
     Dates: start: 20111221, end: 20120622
  9. URSOLVAN [Concomitant]
     Indication: CHOLESTASIS
     Dosage: 600 mg/m2, Unknown/D
     Route: 042
     Dates: start: 20120130
  10. MORPHINE [Concomitant]
     Indication: ANALGESIC THERAPY
     Dosage: 20 ug/kg, Unknown/D
     Route: 042
     Dates: start: 20120106, end: 20120327
  11. MORPHINE [Concomitant]
     Indication: ENDOTRACHEAL INTUBATION
  12. LASILIX                            /00032601/ [Concomitant]
     Indication: OEDEMA
     Dosage: UNK
     Route: 042
  13. LASILIX                            /00032601/ [Concomitant]
     Indication: ASCITES

REACTIONS (1)
  - Hepatic neoplasm [Recovered/Resolved]
